FAERS Safety Report 7145127 (Version 4)
Quarter: 2014Q4

REPORT INFORMATION
  Report Type: Spontaneous
  Country: JP (occurrence: JP)
  Receive Date: 20091009
  Receipt Date: 20141111
  Transmission Date: 20150529
  Serious: Yes (Other)
  Sender: FDA-Public Use
  Company Number: JP-JNJFOC-20091001708

PATIENT
  Age: 58 Year
  Sex: Male
  Weight: 72 kg

DRUGS (11)
  1. FLORID 2% [Suspect]
     Active Substance: MICONAZOLE
     Indication: ORAL CANDIDIASIS
     Route: 049
     Dates: start: 20140410
  2. MICONAZOLE NITRATE. [Suspect]
     Active Substance: MICONAZOLE NITRATE
     Indication: ORAL CANDIDIASIS
     Dosage: 2 %
     Route: 049
     Dates: start: 20090810, end: 20090814
  3. MUCOSTA [Concomitant]
     Active Substance: REBAMIPIDE
     Indication: PRODUCT USED FOR UNKNOWN INDICATION
     Route: 048
  4. WARFARIN [Interacting]
     Active Substance: WARFARIN
     Indication: THROMBOSIS PROPHYLAXIS
     Route: 048
  5. MUCOSTA [Concomitant]
     Active Substance: REBAMIPIDE
     Indication: PRODUCT USED FOR UNKNOWN INDICATION
     Route: 048
  6. WARFARIN [Interacting]
     Active Substance: WARFARIN
     Indication: THROMBOSIS PROPHYLAXIS
     Route: 048
     Dates: start: 20020823, end: 20090823
  7. WARFARIN [Interacting]
     Active Substance: WARFARIN
     Indication: THROMBOSIS PROPHYLAXIS
     Route: 048
     Dates: start: 20090827
  8. BUFFERIN [Concomitant]
     Active Substance: ASPIRIN
     Indication: PRODUCT USED FOR UNKNOWN INDICATION
     Route: 048
  9. AZUNOL [Concomitant]
     Active Substance: SODIUM GUALENATE
     Indication: STOMATITIS
     Route: 049
     Dates: start: 20090810, end: 20100209
  10. FLORID 2% [Suspect]
     Active Substance: MICONAZOLE
     Indication: ORAL CANDIDIASIS
     Dosage: 2 %
     Route: 049
     Dates: start: 20090810, end: 20090814
  11. LASIX [Concomitant]
     Active Substance: FUROSEMIDE
     Indication: PRODUCT USED FOR UNKNOWN INDICATION
     Route: 048

REACTIONS (5)
  - International normalised ratio increased [Recovered/Resolved]
  - Drug interaction [Recovered/Resolved]
  - Haemorrhage subcutaneous [Unknown]
  - Conjunctival haemorrhage [Unknown]
  - Mouth haemorrhage [Recovered/Resolved]

NARRATIVE: CASE EVENT DATE: 20090814
